FAERS Safety Report 22386143 (Version 1)
Quarter: 2023Q2

REPORT INFORMATION
  Report Type: Spontaneous
  Country: US (occurrence: US)
  Receive Date: 20230530
  Receipt Date: 20230530
  Transmission Date: 20230722
  Serious: No
  Sender: FDA-Public Use
  Company Number: US-PERRIGO-23US004876

PATIENT
  Age: 46 Year
  Sex: Male
  Weight: 81.633 kg

DRUGS (2)
  1. MINOXIDIL [Suspect]
     Active Substance: MINOXIDIL
     Indication: Alopecia
     Dosage: SMALL AMOUNT, BID
     Route: 061
     Dates: start: 20230118, end: 20230201
  2. MINOXIDIL [Suspect]
     Active Substance: MINOXIDIL
     Dosage: SMALL AMOUNT, BID
     Route: 061
     Dates: start: 20230215, end: 20230216

REACTIONS (4)
  - Application site vesicles [Recovered/Resolved]
  - Application site ulcer [Recovered/Resolved]
  - Application site pruritus [Unknown]
  - Underdose [Recovered/Resolved]

NARRATIVE: CASE EVENT DATE: 20230118
